FAERS Safety Report 8003228-7 (Version None)
Quarter: 2011Q4

REPORT INFORMATION
  Report Type: 
  Country: None (occurrence: None)
  Receive Date: 20111222
  Receipt Date: 20111216
  Transmission Date: 20120403
  Serious: Yes (Other)
  Sender: FDA-Public Use
  Company Number: PHHO2011US03406

PATIENT
  Sex: Female
  Weight: 66 kg

DRUGS (2)
  1. GILENYA [Suspect]
     Indication: MULTIPLE SCLEROSIS
     Dosage: 1.25 MG, QD
     Route: 048
  2. RITALIN [Concomitant]
     Dosage: 10 MG, QD

REACTIONS (4)
  - STAPHYLOCOCCAL INFECTION [None]
  - DYSPNOEA [None]
  - SUBCUTANEOUS ABSCESS [None]
  - VENTRICULAR TACHYCARDIA [None]
